FAERS Safety Report 14405993 (Version 2)
Quarter: 2018Q1

REPORT INFORMATION
  Report Type: Spontaneous
  Country: US (occurrence: US)
  Receive Date: 20180118
  Receipt Date: 20180130
  Transmission Date: 20180509
  Serious: Yes (Other)
  Sender: FDA-Public Use
  Company Number: US-JNJFOC-20171234092

PATIENT
  Age: 84 Year
  Sex: Female

DRUGS (5)
  1. RISPERDAL [Suspect]
     Active Substance: RISPERIDONE
     Indication: AGITATION
     Route: 048
     Dates: start: 20170126
  2. RISPERDAL [Suspect]
     Active Substance: RISPERIDONE
     Indication: VASCULAR DEMENTIA
     Dosage: AT NIGHT
     Route: 048
  3. ZOLOFT [Suspect]
     Active Substance: SERTRALINE HYDROCHLORIDE
     Indication: DEPRESSION
     Route: 048
     Dates: start: 20161228, end: 20171012
  4. RISPERDAL [Suspect]
     Active Substance: RISPERIDONE
     Indication: AGITATION
     Dosage: AT NIGHT
     Route: 048
  5. RISPERDAL [Suspect]
     Active Substance: RISPERIDONE
     Indication: VASCULAR DEMENTIA
     Route: 048
     Dates: start: 20170126

REACTIONS (7)
  - Asthenopia [Unknown]
  - Inappropriate schedule of drug administration [Unknown]
  - Product use in unapproved indication [Unknown]
  - Hyponatraemia [Recovered/Resolved]
  - Sleep disorder [Unknown]
  - Off label use [Unknown]
  - Fatigue [Unknown]

NARRATIVE: CASE EVENT DATE: 20170126
